FAERS Safety Report 8339695-9 (Version None)
Quarter: 2012Q2

REPORT INFORMATION
  Report Type: 
  Country: None (occurrence: None)
  Receive Date: 20120507
  Receipt Date: 20120503
  Transmission Date: 20120825
  Serious: Yes (Death)
  Sender: FDA-Public Use
  Company Number: US-BAYER-2012-043824

PATIENT
  Age: 2 Year

DRUGS (2)
  1. APROTININ [Suspect]
     Indication: HAEMORRHAGE PROPHYLAXIS
     Dosage: 20000 IU/KG BOLUS
     Route: 042
  2. APROTININ [Suspect]
     Indication: VENTRICULAR SEPTAL DEFECT REPAIR
     Dosage: 20000 IU/KG/H INFUSION
     Route: 042

REACTIONS (3)
  - HEPATIC FAILURE [None]
  - RENAL FAILURE [None]
  - HYPERKALAEMIA [None]
